FAERS Safety Report 4284359-4 (Version None)
Quarter: 2004Q1

REPORT INFORMATION
  Report Type: 
  Country: None (occurrence: None)
  Receive Date: 20040130
  Receipt Date: 20040130
  Transmission Date: 20041129
  Serious: Yes (Hospitalization)
  Sender: FDA-Public Use
  Company Number: None

PATIENT
  Age: 87 Year
  Sex: Male

DRUGS (6)
  1. GLYBURIDE [Suspect]
     Indication: DIABETES MELLITUS NON-INSULIN-DEPENDENT
     Dosage: 2 PO BID
     Route: 048
  2. FINASTERIDE [Concomitant]
  3. FOSINOPRIL SODIUM [Concomitant]
  4. TERAZOSIN HCL [Concomitant]
  5. RABEPRAZOLE SODIUM [Concomitant]
  6. NAPROXEN [Concomitant]

REACTIONS (1)
  - BLOOD GLUCOSE DECREASED [None]
